FAERS Safety Report 18696014 (Version 1)
Quarter: 2021Q1

REPORT INFORMATION
  Report Type: Spontaneous
  Country: US (occurrence: US)
  Receive Date: 20210104
  Receipt Date: 20210104
  Transmission Date: 20210419
  Serious: No
  Sender: FDA-Public Use
  Company Number: US-JAZZ-JPI-P-019745

PATIENT
  Age: 13 Year
  Sex: Female
  Weight: 55.91 kg

DRUGS (8)
  1. LEXAPRO [Concomitant]
     Active Substance: ESCITALOPRAM OXALATE
  2. VITAMIN C [Concomitant]
     Active Substance: ASCORBIC ACID
  3. AMPHETAMINE [Concomitant]
     Active Substance: AMPHETAMINE
  4. XYREM [Suspect]
     Active Substance: SODIUM OXYBATE
     Dosage: 4.5 GRAM, BID
     Route: 048
     Dates: start: 20120215
  5. XYREM [Suspect]
     Active Substance: SODIUM OXYBATE
     Indication: NARCOLEPSY
     Dosage: 2.25 GRAM, BID
     Route: 048
     Dates: start: 20120117, end: 2012
  6. XYREM [Suspect]
     Active Substance: SODIUM OXYBATE
     Indication: SOMNOLENCE
     Dosage: 3 GRAM, BID
     Route: 048
     Dates: start: 2012, end: 20120214
  7. VITAMIN D [ERGOCALCIFEROL] [Concomitant]
     Active Substance: ERGOCALCIFEROL
  8. IRON [Concomitant]
     Active Substance: IRON

REACTIONS (12)
  - Cough [Unknown]
  - Disturbance in attention [Unknown]
  - Therapeutic response unexpected [Unknown]
  - Sinusitis [Unknown]
  - Restless legs syndrome [Unknown]
  - Nausea [Not Recovered/Not Resolved]
  - Headache [Not Recovered/Not Resolved]
  - Pre-existing condition improved [Unknown]
  - Enuresis [Unknown]
  - Drug ineffective [Unknown]
  - Polymenorrhoea [Not Recovered/Not Resolved]
  - Migraine [Unknown]

NARRATIVE: CASE EVENT DATE: 2012
